FAERS Safety Report 25338475 (Version 1)
Quarter: 2025Q2

REPORT INFORMATION
  Report Type: Spontaneous
  Country: US (occurrence: US)
  Receive Date: 20250520
  Receipt Date: 20250520
  Transmission Date: 20250717
  Serious: No
  Sender: SANOFI AVENTIS
  Company Number: US-SA-2025SA143815

PATIENT
  Sex: Male

DRUGS (8)
  1. DUPIXENT [Suspect]
     Active Substance: DUPILUMAB
     Indication: Dermatitis atopic
     Dosage: 200 MG, Q4W
     Route: 058
  2. TRIAMCINOLONE [Concomitant]
     Active Substance: TRIAMCINOLONE
  3. MOMETASONE [Concomitant]
     Active Substance: MOMETASONE
  4. HYDROCORT [HYDROCORTISONE] [Concomitant]
  5. PREDNISOLONE [Concomitant]
     Active Substance: PREDNISOLONE
  6. MULTIVITAMINS WITH FLUORIDE [ASCORBIC ACID;CYANOCOBALAMIN;ERGOCALCIFER [Concomitant]
  7. EUCRISA [Concomitant]
     Active Substance: CRISABOROLE
  8. EPINEPHRINE [Concomitant]
     Active Substance: EPINEPHRINE

REACTIONS (2)
  - Ocular hyperaemia [Unknown]
  - Dermatitis atopic [Unknown]
